FAERS Safety Report 8350889-9 (Version None)
Quarter: 2012Q2

REPORT INFORMATION
  Report Type: 
  Country: None (occurrence: None)
  Receive Date: 20120510
  Receipt Date: 20120507
  Transmission Date: 20120825
  Serious: Yes (Death, Other)
  Sender: FDA-Public Use
  Company Number: JP-BAYER-2011-120838

PATIENT
  Age: 76 Year
  Sex: Male
  Weight: 60 kg

DRUGS (11)
  1. SORAFENIB [Suspect]
     Dosage: 200 MG, QOD
     Route: 048
     Dates: start: 20101215, end: 20101229
  2. GASTROM [Concomitant]
     Dosage: 3 G, QD
     Route: 048
  3. SORAFENIB [Suspect]
     Indication: HEPATIC NEOPLASM MALIGNANT
     Dosage: 400 MG, QD
     Route: 048
     Dates: start: 20100623, end: 20100728
  4. SORAFENIB [Suspect]
     Dosage: 200 MG, QD
     Route: 048
     Dates: start: 20100929, end: 20101124
  5. LIVACT [Concomitant]
     Dosage: 12.45 G, QD
     Route: 048
  6. SORAFENIB [Suspect]
     Dosage: 200 MG, QD
     Route: 048
     Dates: start: 20100804, end: 20100908
  7. ALDACTONE [Concomitant]
     Dosage: 25 MG, QD
     Route: 048
  8. KERATINAMIN [Concomitant]
     Indication: PROPHYLAXIS
     Dosage: UNK
     Route: 061
     Dates: start: 20100623
  9. URSO 250 [Concomitant]
     Dosage: 600 MG, QD
     Route: 048
  10. LASIX [Concomitant]
     Dosage: 20 MG, QD
     Route: 048
  11. LANSOPRAZOLE [Concomitant]
     Dosage: 15 MG, QD
     Route: 048

REACTIONS (4)
  - DEATH [None]
  - DIARRHOEA [None]
  - MALAISE [None]
  - DECREASED APPETITE [None]
